FAERS Safety Report 5410050-4 (Version None)
Quarter: 2007Q3

REPORT INFORMATION
  Report Type: 
  Country: None (occurrence: None)
  Receive Date: 20070809
  Receipt Date: 20040210
  Transmission Date: 20080115
  Serious: Yes (Other)
  Sender: FDA-Public Use
  Company Number: US-PFIZER INC-2007055049

PATIENT
  Sex: Male

DRUGS (1)
  1. CLEOCIN HCL CAPSULE [Suspect]

REACTIONS (4)
  - FATIGUE [None]
  - HYPERTENSION [None]
  - SKIN EXFOLIATION [None]
  - SLEEP DISORDER [None]
